APPROVED DRUG PRODUCT: AMLODIPINE BESYLATE
Active Ingredient: AMLODIPINE BESYLATE
Strength: EQ 10MG BASE
Dosage Form/Route: TABLET;ORAL
Application: A077771 | Product #003
Applicant: HIKMA PHARMACEUTICALS
Approved: Apr 12, 2011 | RLD: No | RS: No | Type: DISCN